FAERS Safety Report 11294613 (Version 1)
Quarter: 2015Q2

REPORT INFORMATION
  Report Type: Spontaneous
  Country: US (occurrence: None)
  Receive Date: 20150623
  Receipt Date: 20150623
  Transmission Date: 20150821
  Serious: Yes (Other)
  Sender: FDA-Public Use
  Company Number: RB-70511-2014

PATIENT
  Age: 82 Year
  Sex: Female

DRUGS (1)
  1. MUCINEX [Suspect]
     Active Substance: GUAIFENESIN
     Indication: PRODUCT USED FOR UNKNOWN INDICATION
     Dosage: (FIRST DOSE TAKEN ON OR AROUND ONE WEEK PRIOR. ONE TABLET LAST TAKEN ON 17-NOV-2014 AT 8PM UNKNOWN)
     Dates: end: 20141117

REACTIONS (3)
  - Feeling abnormal [None]
  - Feeling jittery [None]
  - Restlessness [None]

NARRATIVE: CASE EVENT DATE: 20141117
